FAERS Safety Report 6202230-5 (Version None)
Quarter: 2009Q2

REPORT INFORMATION
  Report Type: 
  Country: None (occurrence: None)
  Receive Date: 20090526
  Receipt Date: 20090519
  Transmission Date: 20091009
  Serious: Yes (Hospitalization, Other)
  Sender: FDA-Public Use
  Company Number: US-MERCK-0901USA02512

PATIENT
  Age: 80 Year
  Sex: Female

DRUGS (11)
  1. GLIPIZIDE [Concomitant]
     Route: 065
  2. LANTUS [Suspect]
     Indication: TYPE 2 DIABETES MELLITUS
     Route: 058
  3. LANTUS [Suspect]
     Route: 058
     Dates: start: 19970101
  4. AGGRENOX [Suspect]
     Route: 065
  5. COZAAR [Suspect]
     Indication: HYPERTENSION
     Route: 048
     Dates: start: 19960101, end: 20070101
  6. COZAAR [Suspect]
     Route: 048
     Dates: start: 20070101, end: 20070101
  7. COZAAR [Suspect]
     Route: 048
     Dates: start: 20070101, end: 20090120
  8. ASPIRIN [Concomitant]
     Route: 065
  9. LANOXIN [Concomitant]
     Route: 065
     Dates: end: 20070726
  10. JANUVIA [Concomitant]
     Route: 048
     Dates: end: 20070726
  11. METFORMIN [Concomitant]
     Route: 065
     Dates: end: 20070101

REACTIONS (26)
  - ALOPECIA [None]
  - BACK PAIN [None]
  - BLOOD GLUCOSE INCREASED [None]
  - BLOOD PRESSURE INADEQUATELY CONTROLLED [None]
  - CEREBROVASCULAR ACCIDENT [None]
  - COUGH [None]
  - DIZZINESS [None]
  - DRUG INTERACTION [None]
  - DYSPHAGIA [None]
  - GAIT DISTURBANCE [None]
  - INFLUENZA [None]
  - LIP DRY [None]
  - LIP EXFOLIATION [None]
  - LIP SWELLING [None]
  - MENINGIOMA [None]
  - MUSCLE SPASMS [None]
  - MYOCARDIAL INFARCTION [None]
  - NEPHROLITHIASIS [None]
  - NEUROPATHY PERIPHERAL [None]
  - NIGHT SWEATS [None]
  - PARAESTHESIA ORAL [None]
  - POOR QUALITY SLEEP [None]
  - PRURITUS [None]
  - RHINORRHOEA [None]
  - SNEEZING [None]
  - WEIGHT INCREASED [None]
